FAERS Safety Report 14385284 (Version 2)
Quarter: 2019Q4

REPORT INFORMATION
  Report Type: Spontaneous
  Country: US (occurrence: US)
  Receive Date: 20180115
  Receipt Date: 20191223
  Transmission Date: 20200122
  Serious: Yes (Other)
  Sender: FDA-Public Use
  Company Number: US-SA-2016SA225711

PATIENT
  Age: 65 Year
  Sex: Female
  Weight: 111.5 kg

DRUGS (4)
  1. LOSARTAN. [Concomitant]
     Active Substance: LOSARTAN
     Dosage: UNK UNK,UNK
     Route: 065
     Dates: start: 2000, end: 2012
  2. TAXOTERE [Suspect]
     Active Substance: DOCETAXEL
     Indication: BREAST CANCER FEMALE
     Dosage: 300 MG,Q3W
     Route: 042
     Dates: start: 20120531, end: 20120531
  3. TAXOTERE [Suspect]
     Active Substance: DOCETAXEL
     Dosage: UNK UNK,QCY
     Route: 042
     Dates: start: 201206, end: 201206
  4. TAXOTERE [Suspect]
     Active Substance: DOCETAXEL
     Dosage: 300 MG,Q3W
     Route: 042
     Dates: start: 20121002, end: 20121002

REACTIONS (6)
  - Psychological trauma [Unknown]
  - Impaired quality of life [Unknown]
  - Pain [Unknown]
  - Alopecia [Recovering/Resolving]
  - Emotional distress [Not Recovered/Not Resolved]
  - Anxiety [Unknown]

NARRATIVE: CASE EVENT DATE: 201302
